FAERS Safety Report 21577530 (Version 1)
Quarter: 2022Q4

REPORT INFORMATION
  Report Type: Report from Study
  Country: US (occurrence: US)
  Receive Date: 20221110
  Receipt Date: 20221110
  Transmission Date: 20230113
  Serious: No
  Sender: FDA-Public Use
  Company Number: US-ABBVIE-4138828

PATIENT
  Sex: Male

DRUGS (4)
  1. HUMIRA [Suspect]
     Active Substance: ADALIMUMAB
     Indication: Crohn^s disease
     Dosage: FORM STRENGTH: 40 CITRATE FREE
     Route: 058
  2. Moderna [Concomitant]
     Indication: COVID-19 immunisation
     Dosage: 1IN1 2ND DOSE
     Route: 030
     Dates: start: 20210228, end: 20210228
  3. Moderna [Concomitant]
     Indication: COVID-19 immunisation
     Dosage: 1IN1 BOOSTER DOSE
     Route: 030
     Dates: start: 20210601, end: 20210601
  4. Moderna [Concomitant]
     Indication: COVID-19 immunisation
     Dosage: 1IN1 1ST DOSE
     Route: 030
     Dates: start: 20210130, end: 20210130

REACTIONS (1)
  - Crohn^s disease [Not Recovered/Not Resolved]
